FAERS Safety Report 4572133-0 (Version None)
Quarter: 2005Q1

REPORT INFORMATION
  Report Type: 
  Country: None (occurrence: None)
  Receive Date: 20050202
  Receipt Date: 20050126
  Transmission Date: 20050727
  Serious: Yes (Hospitalization, Other)
  Sender: FDA-Public Use
  Company Number: 163-20785-04100252

PATIENT
  Age: 67 Year
  Sex: Male
  Weight: 90.7194 kg

DRUGS (5)
  1. THALOMID [Suspect]
     Indication: MALIGNANT MELANOMA
     Dosage: 300 MG, DAILY, ORAL
     Route: 048
     Dates: start: 20040817
  2. HYDROCHLOROTHIAZIDE [Concomitant]
  3. PEPCID [Concomitant]
  4. TUMS (CALCIUM CARBONATE) [Concomitant]
  5. LEUKINE [Suspect]
     Indication: MALIGNANT MELANOMA
     Dosage: 250UG,QD X14 D THEN QOD FOR 14 D
     Dates: start: 20040817, end: 20040927

REACTIONS (8)
  - BLOOD GLUCOSE INCREASED [None]
  - CONFUSIONAL STATE [None]
  - DEEP VEIN THROMBOSIS [None]
  - DIFFICULTY IN WALKING [None]
  - DRUG INTERACTION [None]
  - FATIGUE [None]
  - PULMONARY EMBOLISM [None]
  - VOMITING [None]
